FAERS Safety Report 9417447 (Version 1)
Quarter: 2013Q3

REPORT INFORMATION
  Report Type: Spontaneous
  Country: US (occurrence: None)
  Receive Date: 20130722
  Receipt Date: 20130722
  Transmission Date: 20140515
  Serious: No
  Sender: FDA-Public Use
  Company Number: None

PATIENT
  Age: 34 Year
  Sex: Male
  Weight: 102.06 kg

DRUGS (1)
  1. METOPROLOL ER [Suspect]
     Indication: HYPERTENSION
     Dosage: ONE DAY
     Route: 048
     Dates: start: 20130507, end: 20130807

REACTIONS (4)
  - Heart rate increased [None]
  - Blood pressure increased [None]
  - Product substitution issue [None]
  - Product quality issue [None]
